FAERS Safety Report 8832271 (Version 2)
Quarter: 2013Q1

REPORT INFORMATION
  Report Type: Spontaneous
  Country: IT (occurrence: IT)
  Receive Date: 20121009
  Receipt Date: 20130329
  Transmission Date: 20140127
  Serious: Yes (Other)
  Sender: FDA-Public Use
  Company Number: IT-CELGENEUS-083-50794-12100080

PATIENT
  Age: 74 Year
  Sex: Male

DRUGS (4)
  1. VIDAZA [Suspect]
     Indication: ACUTE MYELOID LEUKAEMIA
     Route: 058
     Dates: start: 20120220, end: 20120615
  2. VIDAZA [Suspect]
     Route: 058
  3. VIDAZA [Suspect]
     Route: 058
  4. VIDAZA [Suspect]
     Route: 058

REACTIONS (1)
  - Hepatic enzyme increased [Recovering/Resolving]
